FAERS Safety Report 4902171-7 (Version None)
Quarter: 2006Q1

REPORT INFORMATION
  Report Type: 
  Country: None (occurrence: None)
  Receive Date: 20060206
  Receipt Date: 20060126
  Transmission Date: 20060701
  Serious: Yes (Life-Threatening, Hospitalization)
  Sender: FDA-Public Use
  Company Number: DE-JNJFOC-20060105915

PATIENT
  Age: 44 Year
  Sex: Male

DRUGS (3)
  1. HALDOL [Suspect]
     Indication: SCHIZOPHRENIA
     Route: 048
  2. CLOZAPINE [Suspect]
     Indication: SCHIZOPHRENIA
     Dosage: DURATION: FOR A LONGER PERIOD OF TIME
     Route: 048
  3. SOLIAN [Suspect]
     Indication: SCHIZOPHRENIA
     Route: 048

REACTIONS (4)
  - BRAIN OEDEMA [None]
  - CLOSED HEAD INJURY [None]
  - MULTIPLE FRACTURES [None]
  - SUICIDE ATTEMPT [None]
